FAERS Safety Report 10618810 (Version 6)
Quarter: 2015Q3

REPORT INFORMATION
  Report Type: Report from Study
  Country: US (occurrence: US)
  Receive Date: 20141202
  Receipt Date: 20150828
  Transmission Date: 20151125
  Serious: Yes (Other)
  Sender: FDA-Public Use
  Company Number: US-SA-2014SA014805

PATIENT
  Age: 61 Year
  Sex: Female
  Weight: 77.11 kg

DRUGS (5)
  1. ZOLPIDEM [Concomitant]
     Active Substance: ZOLPIDEM\ZOLPIDEM TARTRATE
     Indication: MULTIPLE SCLEROSIS
     Dates: start: 20140101, end: 20141231
  2. AUBAGIO [Suspect]
     Active Substance: TERIFLUNOMIDE
     Indication: MULTIPLE SCLEROSIS
     Route: 048
     Dates: start: 20140101, end: 20150810
  3. TIZANIDINE. [Concomitant]
     Active Substance: TIZANIDINE
     Indication: MULTIPLE SCLEROSIS
     Dates: start: 20140101, end: 20141231
  4. AUBAGIO [Suspect]
     Active Substance: TERIFLUNOMIDE
     Indication: MULTIPLE SCLEROSIS
     Route: 048
     Dates: start: 20131211
  5. CITALOPRAM [Concomitant]
     Active Substance: CITALOPRAM HYDROBROMIDE
     Indication: MULTIPLE SCLEROSIS
     Dates: start: 20140101, end: 20141231

REACTIONS (6)
  - Insomnia [Unknown]
  - Back pain [Unknown]
  - Unevaluable event [Unknown]
  - Diarrhoea [Not Recovered/Not Resolved]
  - Drug ineffective [Unknown]
  - Walking aid user [Unknown]

NARRATIVE: CASE EVENT DATE: 2014
